FAERS Safety Report 6582339-7 (Version None)
Quarter: 2010Q1

REPORT INFORMATION
  Report Type: 
  Country: None (occurrence: None)
  Receive Date: 20100216
  Receipt Date: 20100105
  Transmission Date: 20100710
  Serious: Yes (Death, Life-Threatening, Hospitalization, Other)
  Sender: FDA-Public Use
  Company Number: US-TYCO HEALTHCARE/MALLINCKRODT-T201000283

PATIENT
  Age: 41 Year
  Sex: Male

DRUGS (4)
  1. METHADOSE [Suspect]
     Dosage: 280 MG, UNK
     Route: 048
  2. CLONIDINE [Concomitant]
     Dosage: UNK
  3. ALBUTEROL [Concomitant]
     Dosage: UNK
  4. IBUPROFEN [Concomitant]
     Dosage: 280 UNK, UNK

REACTIONS (8)
  - CARDIO-RESPIRATORY ARREST [None]
  - COMA [None]
  - COMPARTMENT SYNDROME [None]
  - COMPLETED SUICIDE [None]
  - CYANOSIS [None]
  - HYPOTENSION [None]
  - PULMONARY OEDEMA [None]
  - RENAL FAILURE [None]
